FAERS Safety Report 19622839 (Version 2)
Quarter: 2021Q4

REPORT INFORMATION
  Report Type: Spontaneous
  Country: JP (occurrence: JP)
  Receive Date: 20210728
  Receipt Date: 20211124
  Transmission Date: 20220303
  Serious: Yes (Other)
  Sender: FDA-Public Use
  Company Number: JP-HQ SPECIALTY-JP-2021INT000117

PATIENT
  Age: 37 Year
  Sex: Male

DRUGS (7)
  1. DEXMEDETOMIDINE HYDROCHLORIDE [Suspect]
     Active Substance: DEXMEDETOMIDINE HYDROCHLORIDE
     Indication: Sedative therapy
     Dosage: LOADED AT 1.2 MICROGRAMS/KG/HR (1.2 UG/KG,1 HR)
     Route: 065
     Dates: start: 20210511, end: 20210511
  2. DEXMEDETOMIDINE HYDROCHLORIDE [Suspect]
     Active Substance: DEXMEDETOMIDINE HYDROCHLORIDE
     Dosage: STARTED AT 0.3 MICROGRAMS/KG/HR (0.3 UG/KG,1 HR)
     Route: 065
     Dates: start: 20200511
  3. FENTANYL [Suspect]
     Active Substance: FENTANYL
     Indication: Product used for unknown indication
     Dosage: LITTLE BY LITTLE IN A TOTAL OF 100 MICROGRAMS (50 MCG,1 IN 12 HR)
     Route: 042
     Dates: start: 20200511, end: 20200511
  4. MARCAINE HYPERBARE [Concomitant]
     Indication: Spinal anaesthesia
     Dosage: 2 ML, UNK
     Route: 065
     Dates: start: 20200511
  5. UNSPECIFIED INGREDIENT [Concomitant]
     Active Substance: UNSPECIFIED INGREDIENT
     Indication: Juvenile idiopathic arthritis
     Dosage: UNK
     Route: 065
  6. ANTIRHEUMATIC [Concomitant]
     Indication: Juvenile idiopathic arthritis
     Dosage: UNK
     Route: 065
  7. ANAPEINE [Concomitant]
     Active Substance: ROPIVACAINE HYDROCHLORIDE
     Indication: Epidural anaesthesia
     Dosage: STRENGTH: 0.08PERCENT (4 ML,1 HR)
     Route: 065
     Dates: start: 20200511, end: 20200513

REACTIONS (2)
  - Oxygen saturation decreased [Recovered/Resolved]
  - Respiratory depression [Recovered/Resolved]

NARRATIVE: CASE EVENT DATE: 20200511
